FAERS Safety Report 17656898 (Version 1)
Quarter: 2020Q2

REPORT INFORMATION
  Report Type: Spontaneous
  Country: BR (occurrence: BR)
  Receive Date: 20200410
  Receipt Date: 20200410
  Transmission Date: 20200713
  Serious: Yes (Hospitalization, Other)
  Sender: FDA-Public Use
  Company Number: BR-B.I. PHARMACEUTICALS,INC./RIDGEFIELD-2020-BI-018100

PATIENT
  Age: 62 Year
  Sex: Female

DRUGS (1)
  1. PERSANTIN [Suspect]
     Active Substance: DIPYRIDAMOLE
     Indication: SCAN MYOCARDIAL PERFUSION
     Route: 065

REACTIONS (8)
  - Arterial occlusive disease [Unknown]
  - Abdominal pain upper [Unknown]
  - Ventricular tachycardia [Unknown]
  - Abdominal pain upper [Recovered/Resolved]
  - Atrial fibrillation [Unknown]
  - Acute myocardial infarction [Unknown]
  - Electrocardiogram ST segment elevation [Recovered/Resolved]
  - Myocardial hypoperfusion [Unknown]
